FAERS Safety Report 9304189 (Version 2)
Quarter: 2013Q2

REPORT INFORMATION
  Report Type: Spontaneous
  Country: CZ (occurrence: CZ)
  Receive Date: 20130522
  Receipt Date: 20130531
  Transmission Date: 20140414
  Serious: Yes (Life-Threatening, Hospitalization, Other)
  Sender: FDA-Public Use
  Company Number: CZ-ACTELION-A-CH2013-83238

PATIENT
  Age: 48 Year
  Sex: Female

DRUGS (4)
  1. TRACLEER [Suspect]
     Indication: SKIN ULCER
     Dosage: 125 MG, BID
     Route: 048
     Dates: start: 20121220
  2. TRACLEER [Suspect]
     Dosage: 62.5 MG, BID
     Route: 048
     Dates: start: 20121120, end: 20121219
  3. MEDROL [Concomitant]
     Dosage: 5 MG, OD
     Dates: start: 2003
  4. HELICID [Concomitant]
     Dosage: 20 MG, OD
     Dates: start: 2003

REACTIONS (7)
  - Atrioventricular block complete [Not Recovered/Not Resolved]
  - Bradycardia [Not Recovered/Not Resolved]
  - Loss of consciousness [Not Recovered/Not Resolved]
  - Hypotension [Not Recovered/Not Resolved]
  - Circulatory collapse [Not Recovered/Not Resolved]
  - Cardiac pacemaker insertion [Not Recovered/Not Resolved]
  - Pneumothorax traumatic [Not Recovered/Not Resolved]
